FAERS Safety Report 10936408 (Version 1)
Quarter: 2015Q1

REPORT INFORMATION
  Report Type: Spontaneous
  Country: US (occurrence: US)
  Receive Date: 20150321
  Receipt Date: 20150321
  Transmission Date: 20150721
  Serious: Yes (Hospitalization)
  Sender: FDA-Public Use
  Company Number: US-BIOGENIDEC-2015BI036010

PATIENT
  Age: 58 Year
  Sex: Female

DRUGS (2)
  1. AVONEX [Suspect]
     Active Substance: INTERFERON BETA-1A
     Indication: MULTIPLE SCLEROSIS
     Route: 030
     Dates: start: 19990901
  2. PROVIGIL [Concomitant]
     Active Substance: MODAFINIL

REACTIONS (14)
  - Device dislocation [Recovered/Resolved]
  - Cystitis [Unknown]
  - Pain in extremity [Not Recovered/Not Resolved]
  - Multiple sclerosis relapse [Recovered/Resolved]
  - Urinary incontinence [Recovered/Resolved]
  - Anxiety [Unknown]
  - Pain [Unknown]
  - Erythema [Not Recovered/Not Resolved]
  - Peripheral swelling [Not Recovered/Not Resolved]
  - Gait disturbance [Unknown]
  - Skin discolouration [Not Recovered/Not Resolved]
  - Intervertebral disc degeneration [Recovered/Resolved]
  - Hypophagia [Unknown]
  - Emotional distress [Unknown]

NARRATIVE: CASE EVENT DATE: 2005
